FAERS Safety Report 4337706-9 (Version None)
Quarter: 2004Q2

REPORT INFORMATION
  Report Type: 
  Country: None (occurrence: None)
  Receive Date: 20040408
  Receipt Date: 20040401
  Transmission Date: 20050107
  Serious: Yes (Life-Threatening, Hospitalization)
  Sender: FDA-Public Use
  Company Number: IBF20040002

PATIENT
  Age: 73 Year
  Sex: Male

DRUGS (1)
  1. IBUPROFEN [Suspect]
     Indication: OSTEOARTHRITIS
     Dosage: 1.8 G DAILY PO
     Route: 048
     Dates: start: 20030101, end: 20030101

REACTIONS (14)
  - ACCIDENTAL OVERDOSE [None]
  - AMNESIA [None]
  - AORTIC DISSECTION [None]
  - CARDIAC TAMPONADE [None]
  - CIRCULATORY COLLAPSE [None]
  - HAEMORRHAGE [None]
  - METABOLIC ACIDOSIS [None]
  - MYOCARDIAL INFARCTION [None]
  - MYOCARDIAL RUPTURE [None]
  - PERICARDIAL EFFUSION [None]
  - PERICARDIAL HAEMORRHAGE [None]
  - RENAL ARTERY DISSECTION [None]
  - THROMBOCYTOPENIA [None]
  - VENTRICLE RUPTURE [None]
